FAERS Safety Report 9362078 (Version 2)
Quarter: 2013Q2

REPORT INFORMATION
  Report Type: Spontaneous
  Country: FI (occurrence: FI)
  Receive Date: 20130621
  Receipt Date: 20130621
  Transmission Date: 20140414
  Serious: Yes (Hospitalization, Other)
  Sender: FDA-Public Use
  Company Number: FI-BAXTER-2013BAX021375

PATIENT
  Age: 85 Year
  Sex: Female

DRUGS (2)
  1. EXTRANEAL 7,5 % PERITONEAALIDIALYYSINESTE [Suspect]
     Indication: PERITONEAL DIALYSIS
     Route: 033
  2. PHYSIONEAL 40 GLUCOSE 22,7 MG/ML, PERITONEAALIDIALYYSINESTE [Suspect]
     Indication: PERITONEAL DIALYSIS
     Route: 033

REACTIONS (4)
  - Peritoneal cloudy effluent [Recovered/Resolved]
  - Abdominal pain [Unknown]
  - Peritoneal dialysis complication [Unknown]
  - Peritoneal effluent leukocyte count increased [Unknown]
